FAERS Safety Report 21047765 (Version 6)
Quarter: 2025Q3

REPORT INFORMATION
  Report Type: Spontaneous
  Country: EU (occurrence: EU)
  Receive Date: 20220706
  Receipt Date: 20250708
  Transmission Date: 20251020
  Serious: Yes (Death, Life-Threatening, Hospitalization, Other)
  Sender: PFIZER
  Company Number: EU-MLMSERVICE-20220624-3636243-1

PATIENT
  Age: 17 Year
  Sex: Male

DRUGS (6)
  1. CYTARABINE [Suspect]
     Active Substance: CYTARABINE
     Indication: T-cell type acute leukaemia
  2. FILGRASTIM [Suspect]
     Active Substance: FILGRASTIM
     Indication: T-cell type acute leukaemia
  3. DOXORUBICIN [Suspect]
     Active Substance: DOXORUBICIN
     Indication: T-cell type acute leukaemia
  4. FLUDARABINE [Suspect]
     Active Substance: FLUDARABINE PHOSPHATE
     Indication: T-cell type acute leukaemia
  5. ANAKINRA [Concomitant]
     Active Substance: ANAKINRA
     Indication: Systemic inflammatory response syndrome
     Dosage: 100 MG, 1X/DAY
     Route: 058
  6. ANAKINRA [Concomitant]
     Active Substance: ANAKINRA
     Dosage: 100 MG, 2X/DAY
     Route: 058

REACTIONS (7)
  - Cystitis haemorrhagic [Fatal]
  - Sepsis [Fatal]
  - Cardiac failure [Fatal]
  - Renal failure [Fatal]
  - Cytomegalovirus hepatitis [Fatal]
  - Cytopenia [Fatal]
  - Venoocclusive liver disease [Fatal]
